FAERS Safety Report 9112523 (Version 1)
Quarter: 2013Q1

REPORT INFORMATION
  Report Type: Spontaneous
  Country: IT (occurrence: IT)
  Receive Date: 20130212
  Receipt Date: 20130212
  Transmission Date: 20140127
  Serious: Yes (Hospitalization)
  Sender: FDA-Public Use
  Company Number: IT-TEVA-385375ISR

PATIENT
  Age: 31 Year
  Sex: Male

DRUGS (2)
  1. AMOXICILLINA TRIIDRATA/POTASSIO CLAVULANATO [Suspect]
     Indication: MALAISE
     Dosage: 1 GRAM DAILY;
     Route: 048
     Dates: start: 20130102, end: 20130102
  2. ACETYLSALICYLIC ACID [Concomitant]
     Indication: MALAISE
     Dates: start: 20130101, end: 20130102

REACTIONS (3)
  - Chest discomfort [Recovering/Resolving]
  - Erythema [Recovering/Resolving]
  - Pruritus [Recovering/Resolving]
